FAERS Safety Report 17623545 (Version 1)
Quarter: 2020Q2

REPORT INFORMATION
  Report Type: Spontaneous
  Country: FR (occurrence: FR)
  Receive Date: 20200403
  Receipt Date: 20200403
  Transmission Date: 20200713
  Serious: Yes (Other)
  Sender: FDA-Public Use
  Company Number: FR-ASTRAZENECA-2020SE44473

PATIENT
  Sex: Female

DRUGS (2)
  1. INEXIUM [Suspect]
     Active Substance: ESOMEPRAZOLE
     Route: 048
     Dates: start: 1999
  2. INEXIUM [Suspect]
     Active Substance: ESOMEPRAZOLE
     Dosage: 20 MG AT ONE TABLET ON MORNING AND EVENING
     Route: 048

REACTIONS (5)
  - Abdominal pain [Unknown]
  - Aphonia [Unknown]
  - Off label use [Unknown]
  - Dysphonia [Unknown]
  - Dyspnoea [Unknown]
